FAERS Safety Report 16155767 (Version 1)
Quarter: 2019Q2

REPORT INFORMATION
  Report Type: Report from Study
  Country: IT (occurrence: IT)
  Receive Date: 20190404
  Receipt Date: 20190404
  Transmission Date: 20190711
  Serious: Yes (Hospitalization)
  Sender: FDA-Public Use
  Company Number: IT-ACCORD-118040

PATIENT
  Age: 65 Year
  Sex: Female

DRUGS (5)
  1. LETROZOLE SANDOZ [Concomitant]
     Active Substance: LETROZOLE
     Indication: BREAST CANCER
     Route: 048
     Dates: start: 20180227, end: 20190114
  2. FLUORO-URACIL MEDA [Suspect]
     Active Substance: FLUOROURACIL
     Indication: BREAST CANCER
     Route: 040
  3. XGEVA [Concomitant]
     Active Substance: DENOSUMAB
     Indication: METASTASES TO BONE
     Dosage: STRENGTH: 120 MG
     Dates: start: 20180405, end: 20190107
  4. ENDOXAN BAXTER [Suspect]
     Active Substance: CYCLOPHOSPHAMIDE
     Indication: BREAST CANCER
     Route: 041
  5. METHOTREXATE. [Suspect]
     Active Substance: METHOTREXATE
     Indication: BREAST CANCER
     Route: 040

REACTIONS (3)
  - Leukaemia [Not Recovered/Not Resolved]
  - Neoplasm [Not Recovered/Not Resolved]
  - Acute myeloid leukaemia [Not Recovered/Not Resolved]

NARRATIVE: CASE EVENT DATE: 20190114
